FAERS Safety Report 13480423 (Version 2)
Quarter: 2017Q2

REPORT INFORMATION
  Report Type: Spontaneous
  Country: US (occurrence: US)
  Receive Date: 20170425
  Receipt Date: 20170426
  Transmission Date: 20170830
  Serious: No
  Sender: FDA-Public Use
  Company Number: US-009507513-1704USA012804

PATIENT

DRUGS (2)
  1. PENTACEL [Suspect]
     Active Substance: DIPHTHERIA AND TETANUS TOXOIDS AND ACELLULAR PERTUSSIS ADSORBED, INACTIVATED POLIOVIRUS AND HAEMOPHILUS B CONJUGATE (TETANUS TOXOID CONJUGATE) VACCINE
     Indication: PROPHYLAXIS
  2. STERILE DILUENT [Suspect]
     Active Substance: WATER
     Route: 030

REACTIONS (2)
  - Product use issue [Unknown]
  - No adverse event [Unknown]
